FAERS Safety Report 12111025 (Version 2)
Quarter: 2016Q2

REPORT INFORMATION
  Report Type: Report from Study
  Country: CA (occurrence: CA)
  Receive Date: 20160224
  Receipt Date: 20160408
  Transmission Date: 20160815
  Serious: Yes (Hospitalization)
  Sender: FDA-Public Use
  Company Number: CA-BIOGEN-2016BI00192403

PATIENT
  Age: 26 Year
  Sex: Female

DRUGS (1)
  1. TYSABRI [Suspect]
     Active Substance: NATALIZUMAB
     Indication: MULTIPLE SCLEROSIS
     Route: 042
     Dates: start: 20130530

REACTIONS (4)
  - Pyrexia [Unknown]
  - Pain in extremity [Unknown]
  - Catheter site pain [Unknown]
  - Vertigo [Unknown]

NARRATIVE: CASE EVENT DATE: 20160211
